FAERS Safety Report 9412643 (Version 2)
Quarter: 2013Q3

REPORT INFORMATION
  Report Type: Spontaneous
  Country: FR (occurrence: FR)
  Receive Date: 20130722
  Receipt Date: 20130731
  Transmission Date: 20140515
  Serious: Yes (Hospitalization)
  Sender: FDA-Public Use
  Company Number: FR-PFIZER INC-2013209999

PATIENT
  Age: 82 Year
  Sex: Male

DRUGS (10)
  1. AMLOR [Suspect]
     Dosage: 5 MG, DAILY
     Route: 048
     Dates: start: 2011, end: 20130704
  2. ZOXAN [Suspect]
     Dosage: 4 MG, DAILY
     Route: 048
     Dates: end: 20130704
  3. REMINYL [Suspect]
     Indication: DEMENTIA ALZHEIMER^S TYPE
     Dosage: 1 DF, DAILY
     Route: 048
     Dates: start: 2008, end: 20130704
  4. AVODART [Concomitant]
     Dosage: UNK
     Dates: end: 20130704
  5. VESICARE [Concomitant]
     Dosage: UNK
     Dates: end: 20130704
  6. BETASERC [Concomitant]
     Dosage: UNK
     Dates: end: 20130704
  7. ALPRAZOLAM [Concomitant]
  8. ESOMEPRAZOLE [Concomitant]
  9. ZOLPIDEM [Concomitant]
  10. SERETIDE [Concomitant]
     Dosage: UNK

REACTIONS (2)
  - Fall [Not Recovered/Not Resolved]
  - Malaise [Not Recovered/Not Resolved]
